FAERS Safety Report 7701146-2 (Version None)
Quarter: 2011Q3

REPORT INFORMATION
  Report Type: 
  Country: None (occurrence: None)
  Receive Date: 20110822
  Receipt Date: 20110811
  Transmission Date: 20111222
  Serious: Yes (Life-Threatening, Hospitalization)
  Sender: FDA-Public Use
  Company Number: US-MPIJNJ-2011-03560

PATIENT
  Age: 61 Year
  Sex: Male
  Weight: 92.517 kg

DRUGS (3)
  1. VELCADE [Suspect]
     Indication: MULTIPLE MYELOMA
     Dosage: 2.6 MG, CYCLIC
     Route: 042
     Dates: start: 20110307, end: 20110428
  2. DOXORUBICIN HCL [Suspect]
     Indication: MULTIPLE MYELOMA
     Dosage: 20 MG, CYCLIC
     Route: 042
     Dates: start: 20110307, end: 20110425
  3. PAMIDRONATE DISODIUM [Concomitant]
     Indication: MULTIPLE MYELOMA
     Dosage: 90 MG, CYCLIC
     Route: 042
     Dates: start: 20110307, end: 20110418

REACTIONS (2)
  - RENAL FAILURE ACUTE [None]
  - HYPERGLYCAEMIA [None]
